FAERS Safety Report 8456868-5 (Version None)
Quarter: 2012Q2

REPORT INFORMATION
  Report Type: 
  Country: None (occurrence: None)
  Receive Date: 20120621
  Receipt Date: 20120613
  Transmission Date: 20120825
  Serious: Yes (Hospitalization)
  Sender: FDA-Public Use
  Company Number: FR-B.I. PHARMACEUTICALS,INC./RIDGEFIELD-2012-FF-00751FF

PATIENT
  Age: 85 Year
  Sex: Female

DRUGS (5)
  1. ASPIRIN [Suspect]
     Dates: start: 20120101, end: 20120101
  2. CORDARONE [Concomitant]
  3. PRADAXA [Suspect]
     Indication: ATRIAL FIBRILLATION
     Dosage: 150 MG
     Route: 048
     Dates: start: 20120101, end: 20120101
  4. ANTI-HYPERTENSIVE DRUG [Concomitant]
  5. DIURETIC [Concomitant]

REACTIONS (2)
  - RECTAL NEOPLASM [None]
  - LOWER GASTROINTESTINAL HAEMORRHAGE [None]
